FAERS Safety Report 21440561 (Version 1)
Quarter: 2022Q4

REPORT INFORMATION
  Report Type: Report from Study
  Country: US (occurrence: US)
  Receive Date: 20221011
  Receipt Date: 20221011
  Transmission Date: 20230113
  Serious: No
  Sender: FDA-Public Use
  Company Number: US-ABBVIE-4143895

PATIENT
  Sex: Female

DRUGS (1)
  1. HUMIRA [Suspect]
     Active Substance: ADALIMUMAB
     Indication: Rheumatoid arthritis
     Dosage: CF PEN
     Route: 058

REACTIONS (3)
  - Gait inability [Unknown]
  - Nodule [Recovering/Resolving]
  - Musculoskeletal stiffness [Recovering/Resolving]
